FAERS Safety Report 15133157 (Version 3)
Quarter: 2018Q3

REPORT INFORMATION
  Report Type: Report from Study
  Country: US (occurrence: US)
  Receive Date: 20180712
  Receipt Date: 20180724
  Transmission Date: 20181010
  Serious: Yes (Other)
  Sender: FDA-Public Use
  Company Number: US-GILEAD-2018-0348513

PATIENT
  Age: 64 Year
  Sex: Male

DRUGS (2)
  1. AMBRISENTAN [Suspect]
     Active Substance: AMBRISENTAN
     Indication: PRODUCT USED FOR UNKNOWN INDICATION
     Dosage: 5 MG, QD
     Route: 065
     Dates: start: 20180604
  2. ADEMPAS [Concomitant]
     Active Substance: RIOCIGUAT

REACTIONS (17)
  - Fall [Unknown]
  - Urine odour abnormal [Not Recovered/Not Resolved]
  - Abdominal distension [Not Recovered/Not Resolved]
  - Ill-defined disorder [Recovering/Resolving]
  - Swelling [Recovering/Resolving]
  - Pain in extremity [Not Recovered/Not Resolved]
  - Peripheral swelling [Recovering/Resolving]
  - Feeling abnormal [Not Recovered/Not Resolved]
  - Productive cough [Unknown]
  - Oxygen saturation decreased [Unknown]
  - Hypotension [Unknown]
  - Upper respiratory tract congestion [Unknown]
  - Swelling face [Recovering/Resolving]
  - Vomiting [Unknown]
  - Chromaturia [Not Recovered/Not Resolved]
  - Nasal congestion [Not Recovered/Not Resolved]
  - Dyspnoea [Unknown]

NARRATIVE: CASE EVENT DATE: 201806
